FAERS Safety Report 4416369-8 (Version None)
Quarter: 2004Q3

REPORT INFORMATION
  Report Type: 
  Country: None (occurrence: None)
  Receive Date: 20040805
  Receipt Date: 20010823
  Transmission Date: 20050211
  Serious: Yes (Hospitalization)
  Sender: FDA-Public Use
  Company Number: JP-GLAXOSMITHKLINE-B0118309A

PATIENT
  Age: 35 Year
  Sex: Male
  Weight: 61 kg

DRUGS (9)
  1. COMBIVIR [Suspect]
     Indication: HIV INFECTION
     Dosage: 900MG PER DAY
     Route: 048
     Dates: start: 20000821, end: 20001022
  2. LAMIVUDINE [Suspect]
     Indication: HIV INFECTION
     Dosage: 300MG PER DAY
     Route: 048
     Dates: start: 20001023
  3. STAVUDINE [Suspect]
     Indication: HIV INFECTION
     Dosage: 60MG PER DAY
     Route: 048
     Dates: start: 20001023
  4. INDINAVIR [Suspect]
     Indication: HIV INFECTION
     Dosage: 800MG PER DAY
     Route: 048
     Dates: start: 20000821
  5. RITONAVIR [Suspect]
     Indication: HIV INFECTION
     Dosage: 800MG PER DAY
     Route: 048
     Dates: start: 20000821
  6. BAKTAR [Concomitant]
     Route: 048
     Dates: start: 20000612, end: 20020512
  7. CLARITH [Concomitant]
     Route: 048
     Dates: start: 20000612, end: 20020512
  8. ALLOPURINOL TAB [Concomitant]
     Route: 048
     Dates: start: 20000724
  9. LOPEMIN [Concomitant]
     Route: 048
     Dates: start: 20001023, end: 20001126

REACTIONS (8)
  - ANAEMIA [None]
  - BLOOD CHOLESTEROL INCREASED [None]
  - BLOOD TRIGLYCERIDES INCREASED [None]
  - EATING DISORDER [None]
  - HAEMOGLOBIN DECREASED [None]
  - HYPERLIPIDAEMIA [None]
  - ORAL CANDIDIASIS [None]
  - STOMATITIS [None]
